FAERS Safety Report 7425423 (Version 2)
Quarter: 2020Q3

REPORT INFORMATION
  Report Type: Report from Study
  Country: HU (occurrence: HU)
  Receive Date: 20100618
  Receipt Date: 20100914
  Transmission Date: 20201104
  Serious: Yes (Hospitalization)
  Sender: FDA-Public Use
  Company Number: HU-WYE-H15592210

PATIENT
  Age: 43 Year
  Sex: Female
  Weight: 76 kg

DRUGS (4)
  1. CLINDAMYCIN HYDROCHLORIDE. [Concomitant]
     Active Substance: CLINDAMYCIN HYDROCHLORIDE
     Indication: ACNE
     Dosage: NOT PROVIDED
     Route: 061
     Dates: start: 20100426
  2. LAPATINIB [Suspect]
     Active Substance: LAPATINIB
     Indication: BREAST CANCER METASTATIC
     Route: 048
     Dates: start: 20100412, end: 20100607
  3. LORATADINE. [Concomitant]
     Active Substance: LORATADINE
     Indication: RASH MACULO-PAPULAR
     Dosage: NOT PROVIDED
     Route: 048
     Dates: start: 20100514
  4. CAPECITABINE. [Suspect]
     Active Substance: CAPECITABINE
     Indication: BREAST CANCER METASTATIC
     Route: 048
     Dates: start: 20100412, end: 20100607

REACTIONS (1)
  - Ischaemic stroke [Recovered/Resolved]

NARRATIVE: CASE EVENT DATE: 20100608
